FAERS Safety Report 24455273 (Version 2)
Quarter: 2024Q4

REPORT INFORMATION
  Report Type: Report from Study
  Country: US (occurrence: US)
  Receive Date: 20241017
  Receipt Date: 20241018
  Transmission Date: 20250115
  Serious: No
  Sender: ROCHE
  Company Number: US-ROCHE-3476602

PATIENT
  Age: 73 Year
  Sex: Male
  Weight: 90.72 kg

DRUGS (4)
  1. RITUXAN [Suspect]
     Active Substance: RITUXIMAB
     Indication: Encephalitis autoimmune
     Dosage: THEN EVERY 6 MONTHS
     Route: 041
     Dates: start: 202310
  2. KEPPRA [Concomitant]
     Active Substance: LEVETIRACETAM
     Indication: Encephalitis autoimmune
     Dosage: 500MG TABLETS, 3 PILLS TWICE A DAY, 1500MG TWICE PER DAY
     Route: 048
     Dates: start: 202309
  3. PREDNISONE [Concomitant]
     Active Substance: PREDNISONE
     Indication: Encephalitis autoimmune
     Dosage: DOWN TO 20MG, STARTED AT 40MG
     Route: 048
     Dates: start: 202309
  4. PREDNISONE [Concomitant]
     Active Substance: PREDNISONE

REACTIONS (2)
  - Tremor [Not Recovered/Not Resolved]
  - Off label use [Unknown]

NARRATIVE: CASE EVENT DATE: 20231001
